FAERS Safety Report 7171582 (Version 1)
Quarter: 2020Q3

REPORT INFORMATION
  Report Type: Report from Study
  Country: CA (occurrence: CA)
  Receive Date: 20091110
  Receipt Date: 20091110
  Transmission Date: 20201105
  Serious: Yes (Other)
  Sender: FDA-Public Use
  Company Number: CA-JNJFOC-20091009109

PATIENT
  Age: 46 Year
  Sex: Male

DRUGS (25)
  1. USTEKINUMAB [Suspect]
     Active Substance: USTEKINUMAB
     Route: 058
  2. USTEKINUMAB [Suspect]
     Active Substance: USTEKINUMAB
     Route: 058
  3. USTEKINUMAB [Suspect]
     Active Substance: USTEKINUMAB
     Route: 058
  4. USTEKINUMAB [Suspect]
     Active Substance: USTEKINUMAB
     Route: 058
  5. USTEKINUMAB [Suspect]
     Active Substance: USTEKINUMAB
     Route: 058
  6. USTEKINUMAB [Suspect]
     Active Substance: USTEKINUMAB
     Route: 058
  7. USTEKINUMAB [Suspect]
     Active Substance: USTEKINUMAB
     Route: 058
  8. USTEKINUMAB [Suspect]
     Active Substance: USTEKINUMAB
     Route: 058
  9. USTEKINUMAB [Suspect]
     Active Substance: USTEKINUMAB
     Route: 058
  10. AVAPRO [Concomitant]
     Active Substance: IRBESARTAN
  11. AVAPRO [Concomitant]
     Active Substance: IRBESARTAN
     Indication: HYPERTENSION
  12. USTEKINUMAB [Suspect]
     Active Substance: USTEKINUMAB
     Route: 058
  13. USTEKINUMAB [Suspect]
     Active Substance: USTEKINUMAB
     Route: 058
  14. USTEKINUMAB [Suspect]
     Active Substance: USTEKINUMAB
     Indication: PSORIASIS
     Route: 058
  15. USTEKINUMAB [Suspect]
     Active Substance: USTEKINUMAB
     Route: 058
  16. USTEKINUMAB [Suspect]
     Active Substance: USTEKINUMAB
     Route: 058
  17. USTEKINUMAB [Suspect]
     Active Substance: USTEKINUMAB
     Route: 058
  18. USTEKINUMAB [Suspect]
     Active Substance: USTEKINUMAB
     Route: 058
  19. USTEKINUMAB [Suspect]
     Active Substance: USTEKINUMAB
     Route: 058
  20. USTEKINUMAB [Suspect]
     Active Substance: USTEKINUMAB
     Route: 058
  21. USTEKINUMAB [Suspect]
     Active Substance: USTEKINUMAB
     Route: 058
  22. USTEKINUMAB [Suspect]
     Active Substance: USTEKINUMAB
     Route: 058
  23. USTEKINUMAB [Suspect]
     Active Substance: USTEKINUMAB
     Route: 058
  24. USTEKINUMAB [Suspect]
     Active Substance: USTEKINUMAB
     Route: 058
  25. USTEKINUMAB [Suspect]
     Active Substance: USTEKINUMAB
     Route: 058

REACTIONS (1)
  - Malignant melanoma in situ [Not Recovered/Not Resolved]

NARRATIVE: CASE EVENT DATE: 20090911
